FAERS Safety Report 5172805-3 (Version None)
Quarter: 2006Q4

REPORT INFORMATION
  Report Type: 
  Country: None (occurrence: None)
  Receive Date: 20061213
  Receipt Date: 20060811
  Transmission Date: 20070319
  Serious: No
  Sender: FDA-Public Use
  Company Number: US-AMGEN-KDL189801

PATIENT
  Sex: Female

DRUGS (3)
  1. ENBREL [Suspect]
     Indication: RHEUMATOID ARTHRITIS
     Route: 058
     Dates: start: 20060720
  2. SULFASALAZINE [Concomitant]
     Route: 048
     Dates: start: 20040101
  3. PLAQUENIL [Concomitant]
     Route: 048
     Dates: start: 20040101

REACTIONS (1)
  - FATIGUE [None]
